FAERS Safety Report 10359033 (Version 1)
Quarter: 2014Q3

REPORT INFORMATION
  Report Type: Spontaneous
  Country: US (occurrence: None)
  Receive Date: 20140730
  Receipt Date: 20140730
  Transmission Date: 20150326
  Serious: No
  Sender: FDA-Public Use
  Company Number: None

PATIENT
  Age: 33 Year
  Sex: Female
  Weight: 62.14 kg

DRUGS (1)
  1. AMPHET/DEXTRO [Suspect]
     Active Substance: AMPHETAMINE\DEXTROAMPHETAMINE
     Indication: ATTENTION DEFICIT/HYPERACTIVITY DISORDER
     Dosage: 2 PILLS TWICE DAILY TAKEN BY MOUTH
     Route: 048

REACTIONS (9)
  - Headache [None]
  - Irritability [None]
  - Tremor [None]
  - Product quality issue [None]
  - Product substitution issue [None]
  - Drug ineffective [None]
  - Acne [None]
  - Fatigue [None]
  - Confusional state [None]

NARRATIVE: CASE EVENT DATE: 20140729
